FAERS Safety Report 5754764-5 (Version None)
Quarter: 2008Q2

REPORT INFORMATION
  Report Type: 
  Country: None (occurrence: None)
  Receive Date: 20080530
  Receipt Date: 20080520
  Transmission Date: 20081010
  Serious: Yes (Other)
  Sender: FDA-Public Use
  Company Number: US-PFIZER INC-2008044673

PATIENT
  Sex: Female
  Weight: 71.2 kg

DRUGS (5)
  1. CHANTIX [Suspect]
     Indication: SMOKING CESSATION THERAPY
  2. PAXIL [Concomitant]
     Indication: DEPRESSION
  3. ZYPREXA [Concomitant]
     Indication: SCHIZOPHRENIA
  4. ABILIFY [Concomitant]
     Indication: SCHIZOPHRENIA
  5. KLONOPIN [Concomitant]

REACTIONS (1)
  - DEPRESSION [None]
